FAERS Safety Report 25914492 (Version 1)
Quarter: 2025Q4

REPORT INFORMATION
  Report Type: Spontaneous
  Country: US (occurrence: US)
  Receive Date: 20251013
  Receipt Date: 20251013
  Transmission Date: 20260117
  Serious: Yes (Hospitalization)
  Sender: EVOKE PHARMA, INC.
  Company Number: US-EVOKE PHARMA, INC.-2025EVO000118

PATIENT

DRUGS (2)
  1. GIMOTI [Suspect]
     Active Substance: METOCLOPRAMIDE HYDROCHLORIDE
     Indication: Impaired gastric emptying
     Dosage: 15 MICROGRAM, 1 SPRAY INTO ONE NOSTRIL QID
     Route: 045
  2. GIMOTI [Suspect]
     Active Substance: METOCLOPRAMIDE HYDROCHLORIDE
     Dosage: 15 MICROGRAM, 1 SPRAY INTO ONE NOSTRIL QID
     Route: 045
     Dates: start: 20250728

REACTIONS (2)
  - Vomiting [Recovered/Resolved]
  - Nausea [Recovered/Resolved]

NARRATIVE: CASE EVENT DATE: 20250805
